FAERS Safety Report 26023147 (Version 3)
Quarter: 2025Q4

REPORT INFORMATION
  Report Type: Spontaneous
  Country: US (occurrence: US)
  Receive Date: 20251110
  Receipt Date: 20251212
  Transmission Date: 20260117
  Serious: No
  Sender: APELLIS PHARMACEUTICALS
  Company Number: US-APELLIS-2025-APL-0002114

PATIENT

DRUGS (1)
  1. EMPAVELI [Suspect]
     Active Substance: PEGCETACOPLAN
     Indication: Nephritic syndrome
     Dosage: 1080 MG/20 ML SUBCUTANEOUSLY TWICE WEEKLY
     Route: 058
     Dates: start: 20251015

REACTIONS (3)
  - Injection site pain [Recovered/Resolved]
  - Off label use [Unknown]
  - Headache [Unknown]

NARRATIVE: CASE EVENT DATE: 20251015
